FAERS Safety Report 8087256-1 (Version None)
Quarter: 2012Q1

REPORT INFORMATION
  Report Type: 
  Country: None (occurrence: None)
  Receive Date: 20120128
  Receipt Date: 20110603
  Transmission Date: 20120608
  Serious: No
  Sender: FDA-Public Use
  Company Number: US-ABBOTT-11P-163-0725820-00

PATIENT
  Sex: Female

DRUGS (13)
  1. AMBIEN [Concomitant]
     Indication: INSOMNIA
     Dosage: NIGHTLY
  2. ACETAMINOPHEN [Concomitant]
     Indication: PAIN
  3. SOMETHING FOR DEPRESSION [Concomitant]
     Indication: DEPRESSION
  4. ASPIRIN [Concomitant]
     Indication: PAIN
  5. LOTREL [Concomitant]
     Indication: HYPERTENSION
     Dosage: 10MG/20MG DAILY
  6. HUMIRA [Suspect]
     Dates: start: 20110506
  7. UNKNOWN PILL [Concomitant]
     Indication: PRURITUS
  8. METOPROLOL TARTRATE [Concomitant]
     Indication: BLOOD PRESSURE INCREASED
  9. HUMIRA [Suspect]
     Indication: PSORIASIS
     Dates: start: 20110428
  10. IBUPROFEN (ADVIL) [Concomitant]
     Indication: PAIN
  11. PREVACID [Concomitant]
     Indication: GASTROOESOPHAGEAL REFLUX DISEASE
  12. ALBUTEROL [Concomitant]
     Indication: ASTHMA
  13. ALLEGRA [Concomitant]
     Indication: HYPERSENSITIVITY

REACTIONS (4)
  - BLISTER [None]
  - OEDEMA PERIPHERAL [None]
  - FATIGUE [None]
  - PAIN IN EXTREMITY [None]
